FAERS Safety Report 19932597 (Version 1)
Quarter: 2021Q4

REPORT INFORMATION
  Report Type: Spontaneous
  Country: US (occurrence: US)
  Receive Date: 20211007
  Receipt Date: 20211007
  Transmission Date: 20220303
  Serious: Yes (Life-Threatening, Hospitalization)
  Sender: FDA-Public Use
  Company Number: None

PATIENT
  Age: 50 Year
  Sex: Female
  Weight: 55.3 kg

DRUGS (2)
  1. ENHERTU [Suspect]
     Active Substance: FAM-TRASTUZUMAB DERUXTECAN-NXKI
     Indication: HER2 positive breast cancer
     Dosage: ?          OTHER FREQUENCY:ONCE;
     Route: 040
     Dates: start: 20210908, end: 20210927
  2. ENHERTU [Suspect]
     Active Substance: FAM-TRASTUZUMAB DERUXTECAN-NXKI
     Indication: Breast cancer metastatic

REACTIONS (6)
  - Pyrexia [None]
  - Hypotension [None]
  - Cough [None]
  - Computerised tomogram abnormal [None]
  - Pneumonitis [None]
  - Interstitial lung disease [None]

NARRATIVE: CASE EVENT DATE: 20210927
